FAERS Safety Report 18883072 (Version 1)
Quarter: 2021Q1

REPORT INFORMATION
  Report Type: Spontaneous
  Country: AT (occurrence: AT)
  Receive Date: 20210211
  Receipt Date: 20210211
  Transmission Date: 20210420
  Serious: Yes (Other)
  Sender: FDA-Public Use
  Company Number: AT-CELGENEUS-DEU-20210107133

PATIENT
  Age: 67 Year
  Sex: Male

DRUGS (2)
  1. DEXAMETHASONE. [Concomitant]
     Active Substance: DEXAMETHASONE
     Indication: PLASMA CELL MYELOMA
     Route: 065
     Dates: start: 20170925, end: 20170928
  2. REVLIMID [Suspect]
     Active Substance: LENALIDOMIDE
     Indication: PLASMA CELL MYELOMA
     Route: 048

REACTIONS (8)
  - Arthralgia [Unknown]
  - Autoimmune disorder [Unknown]
  - Osteoarthritis [Unknown]
  - Thoracic outlet syndrome [Unknown]
  - Plasma cell myeloma [Unknown]
  - Inflammation [Unknown]
  - Hypertension [Unknown]
  - Pulmonary oedema [Unknown]
